FAERS Safety Report 8349848-1 (Version None)
Quarter: 2012Q2

REPORT INFORMATION
  Report Type: 
  Country: None (occurrence: None)
  Receive Date: 20120510
  Receipt Date: 20120502
  Transmission Date: 20120825
  Serious: Yes (Hospitalization, Other)
  Sender: FDA-Public Use
  Company Number: PT-PFIZER INC-2012102424

PATIENT
  Age: 50 Year
  Sex: Female

DRUGS (13)
  1. METHOTREXATE SODIUM [Suspect]
     Dosage: 7.5 MG, 1 WK
     Dates: start: 20040101, end: 20060101
  2. RITUXIMAB [Suspect]
     Indication: RHEUMATOID ARTHRITIS
     Dosage: 1000 MG,  2 WEEKS APART
     Dates: start: 20070401
  3. AZATHIOPRINE [Suspect]
     Indication: RHEUMATOID ARTHRITIS
     Dosage: 100 MG, 1X/DAY
     Dates: start: 19971201
  4. GOLD [Suspect]
     Indication: RHEUMATOID ARTHRITIS
     Dosage: UNK
     Dates: start: 19920101, end: 19940301
  5. CALCIUM WITH VITAMIN D [Concomitant]
     Indication: RHEUMATOID ARTHRITIS
     Dosage: 100 MG, 1 D
  6. HYDROXYCHLOROQUINE [Concomitant]
     Indication: RHEUMATOID ARTHRITIS
     Dosage: 400 MG, 1X/DAY
  7. SULFASALAZINE [Suspect]
     Indication: RHEUMATOID ARTHRITIS
     Dosage: 1.5 G, 1X/DAY
  8. PREDNISOLONE [Suspect]
     Indication: RHEUMATOID ARTHRITIS
     Dosage: UNK, 1 D
  9. ETANERCEPT [Suspect]
     Indication: RHEUMATOID ARTHRITIS
     Dosage: UNK
     Dates: start: 20060301
  10. ADALIMUMAB [Suspect]
     Indication: RHEUMATOID ARTHRITIS
     Dosage: 40 MG , EVERY OTHER WEEK
     Dates: start: 20030401
  11. ALENDRONIC ACID [Suspect]
     Indication: RHEUMATOID ARTHRITIS
     Dosage: 70 MG, WEEKLY
     Dates: start: 20030101
  12. METHOTREXATE SODIUM [Suspect]
     Indication: RHEUMATOID ARTHRITIS
     Dosage: 7.5 MG, WEEKLY
     Dates: start: 19950101, end: 19970101
  13. RITUXIMAB [Suspect]
     Dosage: UNK
     Dates: start: 20100301

REACTIONS (15)
  - CHOLESTASIS [None]
  - MULTIPLE FRACTURES [None]
  - WRIST FRACTURE [None]
  - RIB FRACTURE [None]
  - MUCOSAL INFLAMMATION [None]
  - STEATORRHOEA [None]
  - APHTHOUS STOMATITIS [None]
  - WEIGHT DECREASED [None]
  - NAUSEA [None]
  - VOMITING [None]
  - CHEST PAIN [None]
  - SJOGREN'S SYNDROME [None]
  - BILIARY CIRRHOSIS PRIMARY [None]
  - HEPATIC STEATOSIS [None]
  - GANGLIONEUROMA [None]
